FAERS Safety Report 8494445-0 (Version None)
Quarter: 2012Q3

REPORT INFORMATION
  Report Type: 
  Country: None (occurrence: None)
  Receive Date: 20120709
  Receipt Date: 20120702
  Transmission Date: 20120928
  Serious: Yes (Other)
  Sender: FDA-Public Use
  Company Number: BR-ABBOTT-11P-020-0868340-00

PATIENT
  Sex: Male
  Weight: 90 kg

DRUGS (3)
  1. ATENOLOL [Concomitant]
     Indication: HYPERTENSION
     Route: 048
  2. HUMIRA [Suspect]
     Indication: RHEUMATOID ARTHRITIS
     Route: 058
     Dates: start: 20071001, end: 20110701
  3. HUMIRA [Suspect]
     Route: 058

REACTIONS (10)
  - INFLUENZA [None]
  - COUGH [None]
  - WHITE BLOOD CELL DISORDER [None]
  - IMMUNODEFICIENCY [None]
  - EXPOSURE TO COMMUNICABLE DISEASE [None]
  - ASPARTATE AMINOTRANSFERASE ABNORMAL [None]
  - INFLAMMATION [None]
  - TUBERCULIN TEST POSITIVE [None]
  - SPLINTER [None]
  - ALANINE AMINOTRANSFERASE ABNORMAL [None]
